FAERS Safety Report 4283874-7 (Version None)
Quarter: 2004Q1

REPORT INFORMATION
  Report Type: 
  Country: None (occurrence: None)
  Receive Date: 20040130
  Receipt Date: 20040119
  Transmission Date: 20041129
  Serious: Yes (Hospitalization)
  Sender: FDA-Public Use
  Company Number: US-SHR-03-014412

PATIENT
  Sex: Female

DRUGS (1)
  1. MIRENA [Suspect]
     Indication: CONTRACEPTION
     Dosage: 20 UG, CONT, INTRA-UTERINE
     Route: 015
     Dates: start: 20030804, end: 20030820

REACTIONS (4)
  - PELVIC ABSCESS [None]
  - SALPINGO-OOPHORITIS [None]
  - SEPSIS [None]
  - STREPTOCOCCAL SEPSIS [None]
